FAERS Safety Report 24241322 (Version 3)
Quarter: 2024Q4

REPORT INFORMATION
  Report Type: Spontaneous
  Country: US (occurrence: US)
  Receive Date: 20240823
  Receipt Date: 20241119
  Transmission Date: 20250114
  Serious: Yes (Hospitalization)
  Sender: NOVARTIS
  Company Number: US-002147023-NVSC2024US170407

PATIENT
  Sex: Male

DRUGS (2)
  1. PROMACTA [Suspect]
     Active Substance: ELTROMBOPAG OLAMINE
     Indication: Aplasia pure red cell
     Dosage: 150 MG, QD
     Route: 048
     Dates: start: 202405
  2. LENVIMA [Suspect]
     Active Substance: LENVATINIB
     Indication: Product used for unknown indication
     Dosage: UNK (DAILY DOSE)
     Route: 065

REACTIONS (3)
  - Diarrhoea [Unknown]
  - Blood pressure increased [Unknown]
  - Haemoglobin decreased [Unknown]
